FAERS Safety Report 22050809 (Version 2)
Quarter: 2023Q1

REPORT INFORMATION
  Report Type: Spontaneous
  Country: US (occurrence: US)
  Receive Date: 20230301
  Receipt Date: 20230314
  Transmission Date: 20230418
  Serious: No
  Sender: FDA-Public Use
  Company Number: US-ALKERMES INC.-ALK-2023-000862

PATIENT
  Age: 51 Year
  Sex: Male
  Weight: 72.562 kg

DRUGS (32)
  1. VIVITROL [Suspect]
     Active Substance: NALTREXONE
     Indication: Alcoholism
     Dosage: 380 MILLIGRAM, Q28D
     Route: 030
     Dates: start: 20230227
  2. MAPAP [Concomitant]
     Active Substance: ACETAMINOPHEN
     Indication: Pain
     Dosage: 325 MILLIGRAM, EVERY SIX HOURS PRN MILD PAIN (1-3 ON ON A SCALE OF 10)
     Route: 065
     Dates: start: 20230223, end: 20230307
  3. ANTACID PLUS [ALUMINIUM HYDROXIDE;MAGNESIUM HYDROXIDE;SIMETICONE] [Concomitant]
     Indication: Dyspepsia
     Dosage: 30 MILLILITER ; EVERY FOURS PRN
     Route: 065
     Dates: start: 20230223, end: 20230307
  4. DIAZEPAM [Concomitant]
     Active Substance: DIAZEPAM
     Indication: Alcohol withdrawal syndrome
     Dosage: 5 MILLIGRAM, TID
     Route: 065
     Dates: start: 20230228, end: 20230301
  5. DIAZEPAM [Concomitant]
     Active Substance: DIAZEPAM
     Dosage: 5 MILLIGRAM, TID
     Route: 065
     Dates: start: 20230226, end: 20230227
  6. DIAZEPAM [Concomitant]
     Active Substance: DIAZEPAM
     Dosage: 5 MILLIGRAM, TID
     Route: 065
     Dates: start: 20230224, end: 20230225
  7. DOCUSATE [DOCUSATE SODIUM] [Concomitant]
     Indication: Constipation
     Dosage: 100 MILLIGRAM; EVERY MORNING PRN
     Route: 065
     Dates: start: 20230223, end: 20230307
  8. FOLIC ACID [Concomitant]
     Active Substance: FOLIC ACID
     Indication: Hypovitaminosis
     Dosage: 1 MILLIGRAM, QD
     Route: 065
     Dates: start: 20230224, end: 20230307
  9. GABAPENTIN [Concomitant]
     Active Substance: GABAPENTIN
     Indication: Anxiety
     Dosage: 300 MILLIGRAM, TID
     Route: 065
     Dates: start: 20230301, end: 20230307
  10. HYDROXYZINE PAMOATE [Concomitant]
     Active Substance: HYDROXYZINE PAMOATE
     Indication: Anxiety
     Dosage: 50 MILLIGRAM; EVERY SIX HOURS PRN
     Route: 065
     Dates: start: 20230223, end: 20230307
  11. IBUPROFEN [Concomitant]
     Active Substance: IBUPROFEN
     Indication: Pain
     Dosage: 600 MILLIGRAM ; EVERY SIX HOURS PRN MODERATE TO SEVERE PAIN
     Route: 065
     Dates: start: 20230223, end: 20230307
  12. LOPERAMIDE HYDROCHLORIDE [Concomitant]
     Active Substance: LOPERAMIDE HYDROCHLORIDE
     Indication: Diarrhoea
     Dosage: 2 MILLIGRAM; FOUR TIMES A DAY PRN ADMINISTER AFTER EACH LOOSE STOOL
     Route: 065
     Dates: start: 20230223, end: 20230307
  13. ATIVAN [Concomitant]
     Active Substance: LORAZEPAM
     Indication: Anxiety
     Dosage: 4 MILLIGRAM PER MILLILITRE; EVERY HOUR PRN FOR CIWA SCORE 15 TO 25
     Route: 030
     Dates: start: 20230223, end: 20230226
  14. ATIVAN [Concomitant]
     Active Substance: LORAZEPAM
     Indication: Alcohol withdrawal syndrome
     Dosage: 3 MILLIGRAM PER MILLILITRE; EVERY HOUR PRN FOR CIWA SCORE 11 TO 14
     Route: 030
     Dates: start: 20230223, end: 20230226
  15. ATIVAN [Concomitant]
     Active Substance: LORAZEPAM
     Dosage: 2 MILLIGRAM PER MILLILITRE; EVERY HOUR PRN FOR CIWA SCORE 8 TO 10
     Route: 030
     Dates: start: 20230223, end: 20230226
  16. ATIVAN [Concomitant]
     Active Substance: LORAZEPAM
     Dosage: 4 MILLIGRAM; EVERY HOUR PRN FOR CIWA 15 TO 25
     Dates: start: 20230223, end: 20230226
  17. ATIVAN [Concomitant]
     Active Substance: LORAZEPAM
     Dosage: 2 MILLIGRAM; EVERY HOUR PRN FOR CIWA SCORE 8 TO 10
     Route: 030
     Dates: start: 20230223, end: 20230226
  18. ATIVAN [Concomitant]
     Active Substance: LORAZEPAM
     Dosage: 3 MILLIGRAM; EVERY HOUR PRN FOR CIWA SCORE 11-14
     Route: 030
     Dates: start: 20230223, end: 20230226
  19. ATIVAN [Concomitant]
     Active Substance: LORAZEPAM
     Dosage: 1 MILLIGRAM; EVERY SIX HOURS PRN MODERATE ANXIETY
     Route: 030
     Dates: start: 20230223, end: 20230224
  20. LATUDA [Concomitant]
     Active Substance: LURASIDONE HYDROCHLORIDE
     Indication: Bipolar disorder
     Dosage: 20 MILLIGRAM, QD AT 6PM
     Route: 065
     Dates: start: 20230225, end: 20230307
  21. MAGNESIUM OXIDE [Concomitant]
     Active Substance: MAGNESIUM OXIDE
     Indication: Hypovitaminosis
     Dosage: 400 MILLIGRAM, QD
     Route: 065
     Dates: start: 20230224, end: 20230307
  22. THERA D [Concomitant]
     Indication: Hypovitaminosis
     Dosage: 1 TAB, QD
     Route: 065
     Dates: start: 20230224, end: 20230307
  23. NARCAN [Concomitant]
     Active Substance: NALOXONE HYDROCHLORIDE
     Indication: Overdose
     Dosage: 0.4 MILLIGRAM PER MILLILITRE; EVERY TWO MINUTES PRN
     Route: 030
     Dates: start: 20230223, end: 20230307
  24. NALTREXONE [Concomitant]
     Active Substance: NALTREXONE
     Indication: Alcoholism
     Dosage: 50 MILLIGRAM, QHS
     Route: 065
     Dates: start: 20230226, end: 20230226
  25. NICOTINE [Concomitant]
     Active Substance: NICOTINE
     Indication: Smoking cessation therapy
     Dosage: 21 MILLIGRAM/24 HOUR; PRN
     Route: 061
     Dates: start: 20230224, end: 20230307
  26. NICOTINE POLACRILEX [Concomitant]
     Active Substance: NICOTINE
     Indication: Smoking cessation therapy
     Dosage: 4 MILLIGRAM; EVERY FOUR HRS PRN
     Route: 048
     Dates: start: 20230224, end: 20230307
  27. ZOFRAN [Concomitant]
     Active Substance: ONDANSETRON HYDROCHLORIDE
     Indication: Nausea
     Dosage: 4 MILLIGRAM/2MILLILITER; EVERY SIX HOURS PRN; IF UNABLE TO TAKE PER OREM
     Route: 030
     Dates: start: 20230223, end: 20230307
  28. ZOFRAN [Concomitant]
     Active Substance: ONDANSETRON HYDROCHLORIDE
     Indication: Vomiting
     Dosage: 4 MILLIGRAM; EVERY SIX HOURS PRN
     Route: 048
     Dates: start: 20230223, end: 20230307
  29. THIAMINE [Concomitant]
     Active Substance: THIAMINE
     Indication: Vitamin B1
     Dosage: 200 MILLIGRAM, QD
     Route: 065
     Dates: start: 20230224, end: 20230307
  30. TRAZODONE [Concomitant]
     Active Substance: TRAZODONE HYDROCHLORIDE
     Indication: Insomnia
     Dosage: 150 MILLIGRAM, QHS
     Route: 065
     Dates: start: 20230305, end: 20230307
  31. TRAZODONE [Concomitant]
     Active Substance: TRAZODONE HYDROCHLORIDE
     Dosage: 100 MILLIGRAM, QHS
     Route: 065
     Dates: start: 20230224, end: 20230304
  32. TRAZODONE [Concomitant]
     Active Substance: TRAZODONE HYDROCHLORIDE
     Dosage: 50 MILLIGRAM; PRN AT BEDTIME
     Dates: start: 20230223, end: 20230224

REACTIONS (3)
  - Product administered at inappropriate site [Recovered/Resolved]
  - Injection site reaction [Unknown]
  - Injection site pain [Unknown]

NARRATIVE: CASE EVENT DATE: 20230227
